FAERS Safety Report 7393206-3 (Version None)
Quarter: 2011Q2

REPORT INFORMATION
  Report Type: 
  Country: None (occurrence: None)
  Receive Date: 20110405
  Receipt Date: 20110328
  Transmission Date: 20111010
  Serious: Yes (Hospitalization, Other)
  Sender: FDA-Public Use
  Company Number: AR-AMGEN-ARGSP2011007657

PATIENT
  Age: 71 Year
  Sex: Female
  Weight: 70 kg

DRUGS (3)
  1. INSULIN [Concomitant]
     Dosage: UNK
  2. ENBREL [Suspect]
     Indication: RHEUMATOID ARTHRITIS
     Dosage: 25 MG, 2X/WEEK
     Route: 058
     Dates: start: 20060101, end: 20100801
  3. LOSARTAN POTASSIUM [Concomitant]
     Dosage: UNK
     Route: 048

REACTIONS (3)
  - CARDIAC FAILURE [None]
  - RHEUMATOID VASCULITIS [None]
  - DYSPNOEA [None]
